FAERS Safety Report 6236365-8 (Version None)
Quarter: 2009Q2

REPORT INFORMATION
  Report Type: 
  Country: None (occurrence: None)
  Receive Date: 20090619
  Receipt Date: 20090608
  Transmission Date: 20091009
  Serious: Yes (Other)
  Sender: FDA-Public Use
  Company Number: US-JNJFOC-20090602590

PATIENT
  Age: 50 Year
  Sex: Female

DRUGS (1)
  1. DOXIL [Suspect]
     Indication: ENDOMETRIAL CANCER
     Route: 042

REACTIONS (2)
  - BLOOD PRESSURE INCREASED [None]
  - INFUSION RELATED REACTION [None]
